FAERS Safety Report 19737214 (Version 1)
Quarter: 2021Q3

REPORT INFORMATION
  Report Type: Spontaneous
  Country: US (occurrence: US)
  Receive Date: 20210824
  Receipt Date: 20210824
  Transmission Date: 20211014
  Serious: Yes (Other)
  Sender: FDA-Public Use
  Company Number: US-PFIZER INC-2281236

PATIENT
  Age: 30 Month
  Sex: Male

DRUGS (4)
  1. 5?FLUOROURACIL [FLUOROURACIL] [Concomitant]
     Active Substance: FLUOROURACIL
     Indication: HEPATOBLASTOMA
     Dosage: 600 MG/M2, CYCLIC, ON DAY 1
  2. VINCRISTINE SULFATE. [Suspect]
     Active Substance: VINCRISTINE SULFATE
     Indication: HEPATOBLASTOMA
     Dosage: 1.5 MG/M2, CYCLIC, ON DAYS 1, 8, AND 15
  3. DOXORUBICIN [Concomitant]
     Active Substance: DOXORUBICIN
     Indication: HEPATOBLASTOMA
     Dosage: 30 MG/M2, CYCLIC, ON DAYS 1 AND 2
  4. ERYTHROPOIETIN [Concomitant]
     Active Substance: ERYTHROPOIETIN
     Indication: ANAEMIA
     Dosage: UNK

REACTIONS (2)
  - Neuropathy peripheral [Unknown]
  - Off label use [Unknown]
